FAERS Safety Report 7644454 (Version 2)
Quarter: 2013Q3

REPORT INFORMATION
  Report Type: Spontaneous
  Country: IT (occurrence: IT)
  Receive Date: 20101028
  Receipt Date: 20130924
  Transmission Date: 20140515
  Serious: Yes (Other)
  Sender: FDA-Public Use
  Company Number: IT-RANBAXY-2010US-39049

PATIENT
  Age: 50 Year
  Sex: Male

DRUGS (2)
  1. ELAZOR [Suspect]
     Indication: BODY TINEA
     Dosage: 300 MG, 1/WEEK
     Route: 065
  2. CIALIS [Suspect]
     Indication: ERECTILE DYSFUNCTION
     Dosage: UNK, UNK
     Route: 065

REACTIONS (2)
  - Lymphangitis [Recovered/Resolved]
  - Drug interaction [Recovered/Resolved]
